FAERS Safety Report 7324780-0 (Version None)
Quarter: 2011Q1

REPORT INFORMATION
  Report Type: 
  Country: None (occurrence: None)
  Receive Date: 20110301
  Receipt Date: 20110201
  Transmission Date: 20110831
  Serious: No
  Sender: FDA-Public Use
  Company Number: US-BAYER-2011-011464

PATIENT
  Sex: Female
  Weight: 77 kg

DRUGS (5)
  1. ADVAIR DISKUS 100/50 [Concomitant]
     Dosage: UNK UNK, PRN
  2. ALEVE (CAPLET) [Suspect]
     Dosage: 21 DF, ONCE, BOTTLE COUNT 24S
     Route: 048
     Dates: start: 20110201
  3. RESPIRATORY SYSTEM [Concomitant]
     Indication: ASTHMA
  4. AMBIEN [Concomitant]
  5. LEXAPRO [Concomitant]

REACTIONS (1)
  - NO ADVERSE EVENT [None]
